FAERS Safety Report 5405046-2 (Version None)
Quarter: 2007Q3

REPORT INFORMATION
  Report Type: 
  Country: None (occurrence: None)
  Receive Date: 20070801
  Receipt Date: 20070725
  Transmission Date: 20080115
  Serious: Yes (Hospitalization, Other)
  Sender: FDA-Public Use
  Company Number: 2007BI011707

PATIENT
  Age: 56 Year
  Sex: Female
  Weight: 49.8957 kg

DRUGS (18)
  1. AVONEX [Suspect]
     Indication: MULTIPLE SCLEROSIS
     Dosage: 30 UG;QW;IM
     Route: 030
     Dates: start: 19960101, end: 20030101
  2. AVONEX [Suspect]
     Indication: MULTIPLE SCLEROSIS
     Dosage: 30 UG;QW;IM
     Route: 030
     Dates: start: 20030101
  3. ANTIVERT [Concomitant]
  4. OGEN [Concomitant]
  5. AUGMENTIN '125' [Concomitant]
  6. NEURONTIN [Concomitant]
  7. AMBIEN [Concomitant]
  8. LEXAPRO [Concomitant]
  9. EXELON [Concomitant]
  10. OS-CAL [Concomitant]
  11. AMANTADINE HCL [Concomitant]
  12. SYNTHROID [Concomitant]
  13. FENTANYL [Concomitant]
  14. DIOVAN [Concomitant]
  15. CARDIZEM CD [Concomitant]
  16. COLACE [Concomitant]
  17. FLUOROPLEX [Concomitant]
  18. ZYPREXA [Concomitant]

REACTIONS (7)
  - DIZZINESS [None]
  - DRUG TOXICITY [None]
  - FALL [None]
  - HYPERTENSION [None]
  - NAUSEA [None]
  - ORTHOSTATIC HYPOTENSION [None]
  - TOOTH INFECTION [None]
